FAERS Safety Report 9602457 (Version 1)
Quarter: 2013Q4

REPORT INFORMATION
  Report Type: Spontaneous
  Country: US (occurrence: US)
  Receive Date: 20131007
  Receipt Date: 20131007
  Transmission Date: 20140711
  Serious: Yes (Other)
  Sender: FDA-Public Use
  Company Number: US-PFIZER INC-2013284148

PATIENT
  Age: 59 Year
  Sex: Female
  Weight: 88.44 kg

DRUGS (9)
  1. LYRICA [Suspect]
     Indication: MULTIPLE SCLEROSIS
     Dosage: 150 MG, 2X/DAY
  2. LYRICA [Suspect]
     Indication: NEUROPATHY PERIPHERAL
  3. LYRICA [Suspect]
     Indication: FIBROMYALGIA
  4. GABAPENTIN [Suspect]
     Indication: MULTIPLE SCLEROSIS
     Dosage: UNK
  5. GABAPENTIN [Suspect]
     Indication: NEUROPATHY PERIPHERAL
  6. GABAPENTIN [Suspect]
     Indication: FIBROMYALGIA
  7. LANTUS [Concomitant]
     Indication: DIABETES MELLITUS
     Dosage: 60 IU, 1X/DAY
  8. INSULIN [Concomitant]
     Indication: DIABETES MELLITUS
     Dosage: UNK
  9. HUMALOG [Concomitant]
     Indication: DIABETES MELLITUS
     Dosage: UNK

REACTIONS (5)
  - Myocardial infarction [Unknown]
  - Drug dependence [Unknown]
  - Pain [Unknown]
  - Lip swelling [Unknown]
  - Fatigue [Unknown]
